FAERS Safety Report 11352799 (Version 1)
Quarter: 2015Q3

REPORT INFORMATION
  Report Type: Spontaneous
  Country: US (occurrence: US)
  Receive Date: 20150807
  Receipt Date: 20150807
  Transmission Date: 20151125
  Serious: No
  Sender: FDA-Public Use
  Company Number: US-JNJFOC-20140709104

PATIENT
  Age: 60 Year
  Sex: Male
  Weight: 98.88 kg

DRUGS (2)
  1. MENS ROGAINE EXTRA STRENGTH [Suspect]
     Active Substance: MINOXIDIL
     Indication: ALOPECIA
     Dosage: 1/2 CAPFUL, MORNING AND EVENING
     Route: 061
     Dates: end: 20140711
  2. MENS ROGAINE EXTRA STRENGTH [Suspect]
     Active Substance: MINOXIDIL
     Route: 061

REACTIONS (7)
  - Pruritus [Recovering/Resolving]
  - Erythema [Recovering/Resolving]
  - Skin burning sensation [Recovering/Resolving]
  - Vertigo [Recovering/Resolving]
  - Tinnitus [Recovering/Resolving]
  - Nausea [Recovering/Resolving]
  - Headache [Recovering/Resolving]
